FAERS Safety Report 15560225 (Version 3)
Quarter: 2018Q4

REPORT INFORMATION
  Report Type: Spontaneous
  Country: US (occurrence: US)
  Receive Date: 20181029
  Receipt Date: 20181127
  Transmission Date: 20190205
  Serious: Yes (Hospitalization)
  Sender: FDA-Public Use
  Company Number: US-PINNACLE BIOLOGICS BV-2018-CLI-000027

PATIENT
  Sex: Female

DRUGS (1)
  1. PHOTOFRIN [Suspect]
     Active Substance: PORFIMER SODIUM
     Indication: PRODUCT USED FOR UNKNOWN INDICATION
     Dosage: UNK
     Dates: start: 20181022

REACTIONS (3)
  - Pyrexia [Unknown]
  - Tachycardia [Unknown]
  - Pneumonia [Unknown]

NARRATIVE: CASE EVENT DATE: 201810
